FAERS Safety Report 10057786 (Version 2)
Quarter: 2014Q2

REPORT INFORMATION
  Report Type: Report from Study
  Country: FR (occurrence: FR)
  Receive Date: 20140404
  Receipt Date: 20140404
  Transmission Date: 20141212
  Serious: Yes (Hospitalization, Other)
  Sender: FDA-Public Use
  Company Number: FR-ROCHE-1164718

PATIENT
  Age: 61 Year
  Sex: Female

DRUGS (18)
  1. RITUXIMAB [Suspect]
     Indication: RHEUMATOID ARTHRITIS
     Dosage: DAY1
     Route: 042
     Dates: start: 20090415
  2. RITUXIMAB [Suspect]
     Dosage: DAY 15
     Route: 042
     Dates: start: 20090429
  3. RITUXIMAB [Suspect]
     Dosage: DAY1
     Route: 042
     Dates: start: 20100505
  4. RITUXIMAB [Suspect]
     Dosage: DAY 15
     Route: 042
     Dates: start: 20100518
  5. RITUXIMAB [Suspect]
     Dosage: DAY1
     Route: 042
     Dates: start: 20110517
  6. RITUXIMAB [Suspect]
     Route: 042
     Dates: start: 20110630
  7. RITUXIMAB [Suspect]
     Dosage: DAY1
     Route: 042
     Dates: start: 20120801
  8. RITUXIMAB [Suspect]
     Dosage: DAY 15
     Route: 042
     Dates: start: 20120823
  9. RITUXIMAB [Suspect]
     Dosage: DAY 1
     Route: 042
     Dates: start: 20130808
  10. RITUXIMAB [Suspect]
     Dosage: DAY 15
     Route: 042
     Dates: start: 20130821
  11. PARACETAMOL [Concomitant]
     Indication: PREMEDICATION
  12. METHYLPREDNISOLONE [Concomitant]
     Route: 065
  13. CORTANCYL [Concomitant]
     Route: 065
  14. CORTANCYL [Concomitant]
     Route: 065
  15. CORTANCYL [Concomitant]
     Route: 065
  16. CORTANCYL [Concomitant]
     Route: 065
  17. CORTANCYL [Concomitant]
     Route: 065
  18. CORTANCYL [Concomitant]
     Route: 065

REACTIONS (9)
  - Colonic abscess [Recovered/Resolved]
  - Cholelithiasis [Not Recovered/Not Resolved]
  - Infusion related reaction [Recovered/Resolved]
  - Asthenia [Unknown]
  - Swelling [Unknown]
  - Bronchitis [Recovered/Resolved]
  - Gastrointestinal disorder [Recovered/Resolved]
  - Asthenia [Recovered/Resolved]
  - Weight increased [Unknown]
